FAERS Safety Report 11047014 (Version 1)
Quarter: 2015Q2

REPORT INFORMATION
  Report Type: Spontaneous
  Country: SE (occurrence: None)
  Receive Date: 20150416
  Receipt Date: 20150416
  Transmission Date: 20150821
  Serious: Yes (Hospitalization)
  Sender: FDA-Public Use
  Company Number: 20150115

PATIENT
  Age: 90 Year
  Sex: Female

DRUGS (5)
  1. LASIX [Concomitant]
     Active Substance: FUROSEMIDE
  2. LYRICA [Concomitant]
     Active Substance: PREGABALIN
  3. VENOFER [Suspect]
     Active Substance: IRON SUCROSE
     Indication: IRON DEFICIENCY ANAEMIA
     Route: 041
     Dates: start: 20150113
  4. ASCORBIC ACID. [Concomitant]
     Active Substance: ASCORBIC ACID
  5. NICORANDIL [Concomitant]
     Active Substance: NICORANDIL

REACTIONS (1)
  - Syncope [None]

NARRATIVE: CASE EVENT DATE: 20150129
